FAERS Safety Report 20615457 (Version 1)
Quarter: 2022Q1

REPORT INFORMATION
  Report Type: Spontaneous
  Country: FR (occurrence: FR)
  Receive Date: 20220321
  Receipt Date: 20220321
  Transmission Date: 20220423
  Serious: Yes (Hospitalization, Congenital Anomaly, Other)
  Sender: FDA-Public Use
  Company Number: FR-ABBVIE-22K-056-4321347-00

PATIENT

DRUGS (1)
  1. VALPROATE SODIUM [Suspect]
     Active Substance: VALPROATE SODIUM
     Indication: Maternal exposure timing unspecified
     Route: 064

REACTIONS (15)
  - Epilepsy [Unknown]
  - Clonic convulsion [Unknown]
  - Mental impairment [Unknown]
  - Monoparesis [Unknown]
  - Behaviour disorder [Unknown]
  - Psychomotor skills impaired [Unknown]
  - Developmental delay [Unknown]
  - Language disorder [Unknown]
  - Speech sound disorder [Unknown]
  - Learning disorder [Unknown]
  - Sleep disorder [Unknown]
  - Eating disorder [Unknown]
  - Anxiety [Unknown]
  - Fatigue [Unknown]
  - Foetal exposure during pregnancy [Unknown]

NARRATIVE: CASE EVENT DATE: 19880317
